FAERS Safety Report 9464908 (Version 1)
Quarter: 2013Q3

REPORT INFORMATION
  Report Type: Spontaneous
  Country: CA (occurrence: CA)
  Receive Date: 20130819
  Receipt Date: 20130819
  Transmission Date: 20140515
  Serious: Yes (Hospitalization)
  Sender: FDA-Public Use
  Company Number: CA-ROCHE-1262440

PATIENT
  Age: 8 Year
  Sex: Male

DRUGS (8)
  1. CELLCEPT [Suspect]
     Indication: PRODUCT USED FOR UNKNOWN INDICATION
     Dosage: THERAPY DURATION: 3.0 MONTHS
     Route: 065
  2. CYCLOSPORINE [Suspect]
     Indication: PRODUCT USED FOR UNKNOWN INDICATION
     Dosage: THERAPY DURATION: 6.0 DAYS
     Route: 042
  3. CYCLOSPORINE [Suspect]
     Dosage: THERAPY DURATION: 736.0 DAYS
     Route: 042
  4. METHYLPREDNISOLONE SODIUM SUCCINATE [Suspect]
     Indication: PRODUCT USED FOR UNKNOWN INDICATION
     Route: 065
  5. CYCLOPHOSPHAMIDE [Concomitant]
     Route: 065
  6. REMICADE [Concomitant]
     Route: 065
  7. TACROLIMUS [Concomitant]
     Route: 065
  8. ZENAPAX [Concomitant]
     Dosage: STRENGTH 5MG/ML
     Route: 065

REACTIONS (16)
  - Abdominal cavity drainage [Recovered/Resolved]
  - Abdominal pain [Recovered/Resolved]
  - Acute graft versus host disease in intestine [Recovered/Resolved]
  - Diarrhoea haemorrhagic [Recovered/Resolved]
  - Drug ineffective [Unknown]
  - Gastrointestinal disorder [Recovered/Resolved]
  - Enteritis [Recovered/Resolved]
  - Ileus [Recovered/Resolved]
  - Intestinal ischaemia [Recovered/Resolved]
  - Intestinal obstruction [Recovered/Resolved]
  - Intestinal resection [Recovered/Resolved]
  - Intestinal stenosis [Recovered/Resolved]
  - Intestinal ulcer [Recovered/Resolved]
  - Intussusception [Recovered/Resolved]
  - Mucous stools [Recovered/Resolved]
  - Parenteral nutrition [Recovered/Resolved]
